FAERS Safety Report 12544790 (Version 1)
Quarter: 2016Q3

REPORT INFORMATION
  Report Type: Spontaneous
  Country: US (occurrence: US)
  Receive Date: 20160711
  Receipt Date: 20160711
  Transmission Date: 20161109
  Serious: No
  Sender: FDA-Public Use
  Company Number: US-WEST-WARD PHARMACEUTICALS CORP.-US-H14001-15-02172

PATIENT
  Age: 73 Year
  Sex: Female
  Weight: 74.91 kg

DRUGS (1)
  1. CIPROFLOXACIN TABLETS USP [Suspect]
     Active Substance: CIPROFLOXACIN
     Indication: URINARY TRACT INFECTION
     Route: 048
     Dates: start: 20151210, end: 20151224

REACTIONS (3)
  - Abdominal distension [Recovered/Resolved]
  - Gastric pH decreased [Recovered/Resolved]
  - Flatulence [Recovered/Resolved]

NARRATIVE: CASE EVENT DATE: 20151211
